FAERS Safety Report 10008941 (Version 1)
Quarter: 2014Q1

REPORT INFORMATION
  Report Type: Spontaneous
  Country: US (occurrence: US)
  Receive Date: 20140313
  Receipt Date: 20140313
  Transmission Date: 20141002
  Serious: Yes (Death, Hospitalization)
  Sender: FDA-Public Use
  Company Number: PHHY2014US027698

PATIENT
  Age: 79 Year
  Sex: Female
  Weight: 60 kg

DRUGS (5)
  1. ETHAMBUTOL [Suspect]
     Indication: TUBERCULOSIS
     Dosage: 1200 MG (20MG/KG)
  2. ISONIAZID [Suspect]
     Indication: TUBERCULOSIS
     Dosage: 300 MG, DAILY
  3. PYRIDOXINE [Concomitant]
     Indication: TUBERCULOSIS
     Dosage: 25 MG, DAILY
  4. RIFAMPIN [Concomitant]
     Indication: TUBERCULOSIS
     Dosage: 600 MG, DAILY
  5. PYRAZINAMIDE [Concomitant]
     Indication: TUBERCULOSIS
     Dosage: 1500 MG, TIW (25 MG/KG)

REACTIONS (11)
  - Death [Fatal]
  - Optic neuropathy [Unknown]
  - Visual impairment [Unknown]
  - Vision blurred [Unknown]
  - Visual acuity reduced [Unknown]
  - Miosis [Unknown]
  - Visual field defect [Unknown]
  - Colour blindness acquired [Unknown]
  - Neurotoxicity [Recovered/Resolved]
  - Confusional state [Recovered/Resolved]
  - Somnolence [Recovered/Resolved]
